FAERS Safety Report 16093429 (Version 1)
Quarter: 2019Q1

REPORT INFORMATION
  Report Type: Spontaneous
  Country: TR (occurrence: TR)
  Receive Date: 20190320
  Receipt Date: 20190320
  Transmission Date: 20190418
  Serious: Yes (Death)
  Sender: FDA-Public Use
  Company Number: TR-ROCHE-2286327

PATIENT
  Age: 76 Year
  Sex: Male

DRUGS (1)
  1. ALTEPLASE. [Suspect]
     Active Substance: ALTEPLASE
     Indication: ATRIAL THROMBOSIS
     Dosage: 100MG OVER 2 HOURS
     Route: 042

REACTIONS (1)
  - Pulmonary vascular disorder [Fatal]
